FAERS Safety Report 10354167 (Version 3)
Quarter: 2014Q3

REPORT INFORMATION
  Report Type: Report from Study
  Country: ZA (occurrence: ZA)
  Receive Date: 20140731
  Receipt Date: 20140919
  Transmission Date: 20150326
  Serious: Yes (Death, Other)
  Sender: FDA-Public Use
  Company Number: PHHY2013ZA089970

PATIENT
  Age: 53 Year
  Sex: Male
  Weight: 80 kg

DRUGS (6)
  1. VALOID                                  /SAU/ [Concomitant]
     Indication: NAUSEA
     Dosage: 30 MG, PRN
  2. LOSAC [Concomitant]
     Active Substance: OMEPRAZOLE
     Indication: DYSPEPSIA
     Dosage: 20 MG, UNK
  3. SLOW MAG//MAGNESIUM CHLORIDE [Concomitant]
     Indication: BLOOD MAGNESIUM DECREASED
     Dosage: 1 DF, QD
  4. GLIVEC [Suspect]
     Active Substance: IMATINIB MESYLATE
     Dosage: 400 MG, BID
     Route: 048
     Dates: end: 20131012
  5. STOPAYNE SYRUP [Concomitant]
     Indication: PAIN
     Dosage: 6 MG,  (40 ML)
     Route: 048
  6. GLIVEC [Suspect]
     Active Substance: IMATINIB MESYLATE
     Indication: GASTROINTESTINAL STROMAL TUMOUR
     Dosage: 400 MG, QD
     Route: 048
     Dates: start: 20110622, end: 20131003

REACTIONS (4)
  - Gastrointestinal stromal tumour [Not Recovered/Not Resolved]
  - Death [Fatal]
  - Malignant neoplasm progression [Not Recovered/Not Resolved]
  - General physical health deterioration [Unknown]

NARRATIVE: CASE EVENT DATE: 20130703
